FAERS Safety Report 6166127-1 (Version None)
Quarter: 2009Q2

REPORT INFORMATION
  Report Type: 
  Country: None (occurrence: None)
  Receive Date: 20090422
  Receipt Date: 20090422
  Transmission Date: 20091009
  Serious: Yes (Hospitalization)
  Sender: FDA-Public Use
  Company Number: None

PATIENT
  Age: 54 Year
  Sex: Male
  Weight: 47 kg

DRUGS (1)
  1. PENTAMIDINE ISETHIONATE [Suspect]
     Dosage: 300 MG EVERY DAY IV
     Route: 042
     Dates: start: 20090226, end: 20090227

REACTIONS (1)
  - RENAL FAILURE ACUTE [None]
